FAERS Safety Report 25741047 (Version 1)
Quarter: 2025Q3

REPORT INFORMATION
  Report Type: Spontaneous
  Country: US (occurrence: US)
  Receive Date: 20250829
  Receipt Date: 20250829
  Transmission Date: 20251020
  Serious: Yes (Hospitalization)
  Sender: MYLAN
  Company Number: US-MYLANLABS-2025M1072772

PATIENT
  Age: 6 Year
  Sex: Male

DRUGS (9)
  1. TACROLIMUS [Suspect]
     Active Substance: TACROLIMUS
     Indication: Immunosuppressant drug therapy
  2. METHYLPREDNISOLONE [Suspect]
     Active Substance: METHYLPREDNISOLONE
     Indication: Warm autoimmune haemolytic anaemia
  3. METHYLPREDNISOLONE [Suspect]
     Active Substance: METHYLPREDNISOLONE
  4. RITUXIMAB [Suspect]
     Active Substance: RITUXIMAB
     Indication: Cold agglutinins
     Dosage: UNK UNK, QW
  5. RITUXIMAB [Suspect]
     Active Substance: RITUXIMAB
     Indication: Haemolysis
  6. AZATHIOPRINE [Concomitant]
     Active Substance: AZATHIOPRINE
     Indication: Immunosuppressant drug therapy
  7. SIROLIMUS [Concomitant]
     Active Substance: SIROLIMUS
     Indication: Immunosuppressant drug therapy
  8. DOXYCYCLINE [Concomitant]
     Active Substance: DOXYCYCLINE
     Indication: Mycoplasma infection
  9. EPINEPHRINE [Concomitant]
     Active Substance: EPINEPHRINE
     Indication: Vasopressive therapy

REACTIONS (5)
  - Autoimmune haemolytic anaemia [Recovering/Resolving]
  - Thrombotic microangiopathy [Recovering/Resolving]
  - Coagulopathy [Unknown]
  - Acute kidney injury [Recovering/Resolving]
  - Drug ineffective [Unknown]
